FAERS Safety Report 17524773 (Version 1)
Quarter: 2020Q1

REPORT INFORMATION
  Report Type: Spontaneous
  Country: US (occurrence: US)
  Receive Date: 20200310
  Receipt Date: 20200310
  Transmission Date: 20200409
  Serious: No
  Sender: FDA-Public Use
  Company Number: None

PATIENT
  Age: 29 Year
  Sex: Female
  Weight: 85.5 kg

DRUGS (15)
  1. IBUPROFEN. [Concomitant]
     Active Substance: IBUPROFEN
  2. ORILISSA [Suspect]
     Active Substance: ELAGOLIX SODIUM
     Indication: ENDOMETRIOSIS
     Dosage: ?          QUANTITY:7 TABLET(S);?
     Route: 048
     Dates: start: 20200222, end: 20200310
  3. BIOTIN [Concomitant]
     Active Substance: BIOTIN
  4. MIRALAX [Concomitant]
     Active Substance: POLYETHYLENE GLYCOL 3350
  5. NORETHINDRONE. [Concomitant]
     Active Substance: NORETHINDRONE
  6. HYDROXYZINE [Concomitant]
     Active Substance: HYDROXYZINE HYDROCHLORIDE
  7. AMBIEN [Concomitant]
     Active Substance: ZOLPIDEM TARTRATE
  8. CALCIUM/MAGNESIUM [Concomitant]
     Active Substance: CALCIUM\MAGNESIUM
  9. ROLAIDS [Concomitant]
     Active Substance: CALCIUM CARBONATE\MAGNESIUM HYDROXIDE
  10. FAMOTIDINE. [Concomitant]
     Active Substance: FAMOTIDINE
  11. CYMBALTA [Concomitant]
     Active Substance: DULOXETINE HYDROCHLORIDE
  12. VITAMIN A [Concomitant]
     Active Substance: VITAMIN A
  13. FOLIC ACID. [Concomitant]
     Active Substance: FOLIC ACID
  14. PROMETHAZINE [Concomitant]
     Active Substance: PROMETHAZINE HYDROCHLORIDE
  15. TYLENOL [Concomitant]
     Active Substance: ACETAMINOPHEN

REACTIONS (10)
  - Depression [None]
  - Mood swings [None]
  - Hyperhidrosis [None]
  - Insomnia [None]
  - Migraine [None]
  - Therapeutic product effect decreased [None]
  - Hot flush [None]
  - Product complaint [None]
  - Arthralgia [None]
  - Drug intolerance [None]

NARRATIVE: CASE EVENT DATE: 20200222
